FAERS Safety Report 5641906-5 (Version None)
Quarter: 2008Q1

REPORT INFORMATION
  Report Type: 
  Country: None (occurrence: None)
  Receive Date: 20080131
  Receipt Date: 20071126
  Transmission Date: 20080703
  Serious: Yes (Hospitalization)
  Sender: FDA-Public Use
  Company Number: 163-21880-07110730

PATIENT
  Age: 77 Year
  Sex: Male

DRUGS (1)
  1. REVLIMID [Suspect]
     Indication: MULTIPLE MYELOMA
     Dosage: 30 MG, DAILY X 3 WEEKS ON, 1 WEEK OFF, ORAL
     Route: 048
     Dates: start: 20071105

REACTIONS (4)
  - ANAEMIA [None]
  - ANOREXIA [None]
  - FATIGUE [None]
  - INSOMNIA [None]
